FAERS Safety Report 16338505 (Version 2)
Quarter: 2023Q1

REPORT INFORMATION
  Report Type: Spontaneous
  Country: FR (occurrence: FR)
  Receive Date: 20190521
  Receipt Date: 20230328
  Transmission Date: 20230418
  Serious: Yes (Hospitalization, Other)
  Sender: FDA-Public Use
  Company Number: FR-BAYER-200310263BFR

PATIENT
  Age: 44 Year
  Sex: Male

DRUGS (12)
  1. GLUCOR [Suspect]
     Active Substance: ACARBOSE
     Indication: Unevaluable event
     Dosage: UNK
     Route: 048
  2. GLUCOR [Suspect]
     Active Substance: ACARBOSE
     Indication: Unevaluable event
     Dosage: 3 TAB/DAY ()
  3. GLYBURIDE [Suspect]
     Active Substance: GLYBURIDE
     Indication: Type 2 diabetes mellitus
     Dosage: UNK
  4. GLYBURIDE [Suspect]
     Active Substance: GLYBURIDE
     Indication: Type 2 diabetes mellitus
     Dosage: 3 DF DAILY ()
     Route: 048
  5. FELODIPINE [Suspect]
     Active Substance: FELODIPINE
     Indication: Unevaluable event
     Dosage: UNK
     Route: 048
  6. TAHOR [Suspect]
     Active Substance: ATORVASTATIN CALCIUM
     Indication: Unevaluable event
     Dosage: UNK
     Route: 048
  7. TAHOR [Suspect]
     Active Substance: ATORVASTATIN CALCIUM
     Indication: Unevaluable event
     Dosage: 1 TAB/DAY ()
  8. HYDROCHLOROTHIAZIDE\VALSARTAN [Suspect]
     Active Substance: HYDROCHLOROTHIAZIDE\VALSARTAN
     Indication: Hypertension
     Dosage: 1 DF, QD ()
     Route: 048
  9. HYDROCHLOROTHIAZIDE\VALSARTAN [Suspect]
     Active Substance: HYDROCHLOROTHIAZIDE\VALSARTAN
     Indication: Product used for unknown indication
     Dosage: UNK
  10. CELEBREX [Suspect]
     Active Substance: CELECOXIB
     Indication: Unevaluable event
     Dosage: 2 CAPS/DAY
     Route: 048
     Dates: start: 20030225, end: 20030225
  11. NITROGLYCERIN [Concomitant]
     Active Substance: NITROGLYCERIN
     Indication: Chest pain
     Dosage: UNK
     Route: 048
     Dates: start: 20030225, end: 20030225
  12. NITROGLYCERIN [Concomitant]
     Active Substance: NITROGLYCERIN
     Indication: Chest pain
     Dosage: UNK
     Route: 048

REACTIONS (2)
  - Angina pectoris [Unknown]
  - Chest pain [Recovered/Resolved]

NARRATIVE: CASE EVENT DATE: 20030225
